FAERS Safety Report 9902648 (Version 3)
Quarter: 2014Q4

REPORT INFORMATION
  Report Type: Spontaneous
  Country: US (occurrence: US)
  Receive Date: 20140217
  Receipt Date: 20141121
  Transmission Date: 20150529
  Serious: Yes (Hospitalization, Other)
  Sender: FDA-Public Use
  Company Number: US-BAYER-2014-024814

PATIENT
  Age: 23 Year
  Sex: Female
  Weight: 76.64 kg

DRUGS (8)
  1. REMERON [Concomitant]
     Active Substance: MIRTAZAPINE
     Dosage: 30 MG, UNK
  2. MIRENA [Suspect]
     Active Substance: LEVONORGESTREL
     Indication: CONTRACEPTION
     Dosage: 20 MCG/24HR, CONT
     Route: 015
     Dates: start: 20110118, end: 20120125
  3. NORINYL [Concomitant]
     Active Substance: ETHINYL ESTRADIOL\MESTRANOL\NORETHINDRONE
  4. KLONOPIN [Concomitant]
     Active Substance: CLONAZEPAM
     Dosage: 0.5 MG, UNK
  5. CELEXA [Concomitant]
     Active Substance: CITALOPRAM HYDROBROMIDE
  6. NORTREL [Concomitant]
     Active Substance: ETHINYL ESTRADIOL\NORETHINDRONE
  7. MIRENA [Suspect]
     Active Substance: LEVONORGESTREL
     Indication: MENSTRUAL CYCLE MANAGEMENT
  8. ZOLOFT [Concomitant]
     Active Substance: SERTRALINE HYDROCHLORIDE
     Dosage: 50 MG, UNK

REACTIONS (13)
  - Pain [None]
  - Emotional distress [None]
  - Medical device discomfort [None]
  - Uterine perforation [None]
  - Device failure [None]
  - Injury [None]
  - Stress [None]
  - Scar [None]
  - Medical device pain [None]
  - Anxiety [None]
  - Device issue [None]
  - Procedural pain [None]
  - Depression [None]

NARRATIVE: CASE EVENT DATE: 20120125
